FAERS Safety Report 8341403-2 (Version None)
Quarter: 2012Q2

REPORT INFORMATION
  Report Type: 
  Country: None (occurrence: None)
  Receive Date: 20120507
  Receipt Date: 20120424
  Transmission Date: 20120825
  Serious: Yes (Hospitalization)
  Sender: FDA-Public Use
  Company Number: IT-PFIZER INC-2012107851

PATIENT
  Age: 92 Year
  Sex: Female

DRUGS (5)
  1. ASPIRIN [Concomitant]
     Dosage: 100 MG, UNK
  2. LYRICA [Concomitant]
     Dosage: 75 MG, UNK
  3. PANTOPRAZOLE [Suspect]
     Indication: PROPHYLAXIS AGAINST GASTROINTESTINAL ULCER
     Dosage: 20 MG DAILY
     Route: 048
     Dates: start: 20110101
  4. VALSARTAN  AND HYDROCHLOROTHIAZIDE [Suspect]
     Indication: HYPERTENSION
     Dosage: 1 DF, (25/160 MG)
     Route: 048
     Dates: start: 20110101, end: 20120331
  5. CIPROFLOXACIN HCL [Concomitant]
     Dosage: 500 MG, UNK

REACTIONS (1)
  - HYPONATRAEMIA [None]
